FAERS Safety Report 9817155 (Version 1)
Quarter: 2014Q1

REPORT INFORMATION
  Report Type: Spontaneous
  Country: US (occurrence: US)
  Receive Date: 20140114
  Receipt Date: 20140114
  Transmission Date: 20141002
  Serious: Yes (Death)
  Sender: FDA-Public Use
  Company Number: US-PFIZER INC-2014008130

PATIENT
  Age: 50 Year
  Sex: Female

DRUGS (16)
  1. DEXTROMETHORPHAN HBR [Suspect]
     Route: 048
  2. DEXTROMETHORPHAN HBR [Suspect]
     Route: 051
  3. HYDROXYZINE PAMOATE [Suspect]
     Route: 048
  4. HYDROXYZINE PAMOATE [Suspect]
     Route: 051
  5. HEROIN [Suspect]
     Route: 048
  6. HEROIN [Suspect]
     Route: 051
  7. COCAINE [Suspect]
     Route: 048
  8. COCAINE [Suspect]
     Route: 051
  9. TRAMADOL [Suspect]
     Route: 048
  10. TRAMADOL [Suspect]
     Route: 051
  11. DIPHENHYDRAMINE [Suspect]
     Route: 048
  12. DIPHENHYDRAMINE [Suspect]
     Route: 051
  13. CITALOPRAM [Suspect]
     Route: 048
  14. CITALOPRAM [Suspect]
     Route: 051
  15. QUININE [Suspect]
     Route: 048
  16. QUININE [Suspect]
     Route: 051

REACTIONS (1)
  - Drug abuse [Fatal]
